FAERS Safety Report 14904037 (Version 2)
Quarter: 2019Q3

REPORT INFORMATION
  Report Type: Report from Study
  Country: US (occurrence: US)
  Receive Date: 20180516
  Receipt Date: 20190911
  Transmission Date: 20191004
  Serious: Yes (Death)
  Sender: FDA-Public Use
  Company Number: US-ACTELION-A-NJ2018-170878

PATIENT
  Sex: Male
  Weight: 73.92 kg

DRUGS (10)
  1. UPTRAVI [Suspect]
     Active Substance: SELEXIPAG
     Indication: PULMONARY ARTERIAL HYPERTENSION
     Dosage: 200 MCG, BID
     Route: 048
  2. OXYGEN. [Concomitant]
     Active Substance: OXYGEN
     Dosage: CONTINUOUSLY
  3. UPTRAVI [Suspect]
     Active Substance: SELEXIPAG
     Dosage: 1200 MCG, BID
     Route: 048
  4. REVATIO [Concomitant]
     Active Substance: SILDENAFIL CITRATE
  5. TYVASO [Concomitant]
     Active Substance: TREPROSTINIL
     Dosage: 0.6 MG/ML, UNK
     Dates: end: 20180427
  6. OPSUMIT [Suspect]
     Active Substance: MACITENTAN
     Indication: PULMONARY ARTERIAL HYPERTENSION
     Dosage: UNK
     Route: 048
     Dates: end: 20180504
  7. LETAIRIS [Concomitant]
     Active Substance: AMBRISENTAN
  8. UPTRAVI [Suspect]
     Active Substance: SELEXIPAG
     Dosage: 100 MCG, BID
     Route: 048
  9. UPTRAVI [Suspect]
     Active Substance: SELEXIPAG
     Dosage: 800 MCG, BID
     Route: 048
  10. UPTRAVI [Suspect]
     Active Substance: SELEXIPAG
     Dosage: 600 MCG, BID
     Route: 048

REACTIONS (16)
  - Arthralgia [Recovered/Resolved]
  - Abdominal distension [Unknown]
  - Poor quality sleep [Unknown]
  - Headache [Unknown]
  - Disorientation [Unknown]
  - Somnolence [Unknown]
  - Lung disorder [Fatal]
  - Dyspnoea [Fatal]
  - Pain [Unknown]
  - Myalgia [Unknown]
  - Asthenia [Unknown]
  - Pruritus [Unknown]
  - Cardiac failure congestive [Fatal]
  - Influenza like illness [Unknown]
  - Decreased appetite [Unknown]
  - Pain in extremity [Unknown]
